FAERS Safety Report 16297545 (Version 1)
Quarter: 2019Q2

REPORT INFORMATION
  Report Type: Spontaneous
  Country: SE (occurrence: SE)
  Receive Date: 20190510
  Receipt Date: 20190510
  Transmission Date: 20190711
  Serious: Yes (Other)
  Sender: FDA-Public Use
  Company Number: SE-TEVA-2019-SE-1047855

PATIENT
  Age: 33 Year
  Sex: Female

DRUGS (7)
  1. PRIMOLUT-NOR [Concomitant]
     Active Substance: NORETHINDRONE ACETATE
  2. VITAMIN B1 [Concomitant]
     Active Substance: THIAMINE HYDROCHLORIDE
  3. OXASCAND [Concomitant]
     Active Substance: OXAZEPAM
  4. NALTREXONE [Concomitant]
     Active Substance: NALTREXONE
  5. ANTABUS [Suspect]
     Active Substance: DISULFIRAM
     Indication: ALCOHOLISM
     Dosage: 1200 MG/WEEK
     Route: 048
     Dates: start: 20190125, end: 20190329
  6. MELATONIN AGB [Concomitant]
  7. ESCITALOPRAM [Concomitant]
     Active Substance: ESCITALOPRAM OXALATE

REACTIONS (3)
  - Transaminases increased [Recovering/Resolving]
  - Gamma-glutamyltransferase increased [Recovering/Resolving]
  - Failure to suspend medication [Recovering/Resolving]

NARRATIVE: CASE EVENT DATE: 201903
